FAERS Safety Report 6172055-8 (Version None)
Quarter: 2009Q2

REPORT INFORMATION
  Report Type: 
  Country: None (occurrence: None)
  Receive Date: 20090424
  Receipt Date: 20090129
  Transmission Date: 20091009
  Serious: No
  Sender: FDA-Public Use
  Company Number: ALL1-2009-00231

PATIENT
  Sex: Male
  Weight: 107.9 kg

DRUGS (3)
  1. VYVANSE [Suspect]
     Indication: ATTENTION DEFICIT/HYPERACTIVITY DISORDER
     Dosage: 30 MG, 1X/DAY; QD, ORAL
     Route: 048
     Dates: start: 20080101
  2. FENTANYL-100 [Concomitant]
  3. VALIUM [Concomitant]

REACTIONS (1)
  - DRUG EFFECT DECREASED [None]
